FAERS Safety Report 15683610 (Version 1)
Quarter: 2018Q4

REPORT INFORMATION
  Report Type: Spontaneous
  Country: ES (occurrence: ES)
  Receive Date: 20181204
  Receipt Date: 20181204
  Transmission Date: 20190205
  Serious: Yes (Life-Threatening, Hospitalization)
  Sender: FDA-Public Use
  Company Number: ES-PFIZER INC-2018498494

PATIENT
  Age: 57 Year
  Sex: Male
  Weight: 75 kg

DRUGS (6)
  1. EUTIROX [Concomitant]
     Active Substance: LEVOTHYROXINE SODIUM
     Indication: HYPOTHYROIDISM
     Dosage: 125 UG, 1X/DAY
     Route: 048
  2. DACORTIN [Concomitant]
     Active Substance: PREDNISONE
     Indication: POLYMYALGIA RHEUMATICA
     Dosage: 30 MG, 1X/DAY
     Route: 048
     Dates: start: 20180507
  3. ZOMARIST [METFORMIN HYDROCHLORIDE;VILDAGLIPTIN] [Concomitant]
     Indication: DIABETES MELLITUS
     Dosage: 1 DF, 2X/DAY (EVERY 12 HOURS)
     Route: 048
  4. OMEPRAZOL [Concomitant]
     Active Substance: OMEPRAZOLE
     Dosage: 20 MG, 1X/DAY
     Route: 048
  5. CELEBREX [Suspect]
     Active Substance: CELECOXIB
     Indication: POLYMYALGIA RHEUMATICA
     Dosage: 200 MG, 1X/DAY
     Route: 048
     Dates: start: 20180507, end: 20180510
  6. REPAGLINIDE. [Concomitant]
     Active Substance: REPAGLINIDE
     Indication: DIABETES MELLITUS
     Dosage: 2 MG, 3X/DAY
     Route: 048

REACTIONS (1)
  - Acute myocardial infarction [Recovered/Resolved with Sequelae]

NARRATIVE: CASE EVENT DATE: 20180510
